FAERS Safety Report 4903597-8 (Version None)
Quarter: 2006Q1

REPORT INFORMATION
  Report Type: 
  Country: None (occurrence: None)
  Receive Date: 20060208
  Receipt Date: 20060123
  Transmission Date: 20060701
  Serious: Yes (Life-Threatening)
  Sender: FDA-Public Use
  Company Number: AE-SOLVAY-00306000291

PATIENT
  Age: 27 Year
  Sex: Female
  Weight: 55 kg

DRUGS (3)
  1. PROPRANOLOL [Concomitant]
     Indication: TACHYCARDIA
     Dosage: DAILY DOSE: 30 MILLIGRAM(S)
     Route: 048
     Dates: start: 20051208
  2. FLUVOXAMINE MALEATE [Suspect]
     Indication: GENERALISED ANXIETY DISORDER
     Dosage: DAILY DOSE: 50 MILLIGRAM(S)
     Route: 048
     Dates: start: 20051208, end: 20051218
  3. DIAZEPAM [Concomitant]
     Indication: ANXIETY
     Dosage: DAILY DOSE: 10 MILLIGRAM(S): 2.5 MG MORNING, 2.5 MG AFTERNOON, 5 MG EVENING
     Route: 048
     Dates: start: 20051208

REACTIONS (3)
  - DELUSION [None]
  - HALLUCINATION, VISUAL [None]
  - ILLUSION [None]
